FAERS Safety Report 11613478 (Version 2)
Quarter: 2015Q4

REPORT INFORMATION
  Report Type: Report from Study
  Country: FR (occurrence: FR)
  Receive Date: 20151008
  Receipt Date: 20151211
  Transmission Date: 20160304
  Serious: Yes (Other)
  Sender: FDA-Public Use
  Company Number: FR-BRISTOL-MYERS SQUIBB COMPANY-BMS-2015-065330

PATIENT
  Age: 54 Year
  Sex: Male
  Weight: 83 kg

DRUGS (1)
  1. NIVOLUMAB [Suspect]
     Active Substance: NIVOLUMAB
     Indication: NON-SMALL CELL LUNG CANCER
     Dosage: 249 MG, UNK
     Route: 065
     Dates: start: 20150723, end: 20150728

REACTIONS (2)
  - Lymphocyte count abnormal [Unknown]
  - Spinal cord compression [Unknown]

NARRATIVE: CASE EVENT DATE: 20150728
